FAERS Safety Report 17034807 (Version 3)
Quarter: 2020Q1

REPORT INFORMATION
  Report Type: Report from Study
  Country: None (occurrence: AR)
  Receive Date: 20191115
  Receipt Date: 20200128
  Transmission Date: 20200409
  Serious: Yes (Death, Hospitalization, Other)
  Sender: FDA-Public Use
  Company Number: AR-ABBVIE-19K-007-3001476-00

PATIENT
  Age: 69 Year
  Sex: Male
  Weight: 95 kg

DRUGS (1)
  1. HUMIRA [Suspect]
     Active Substance: ADALIMUMAB
     Indication: PSORIASIS
     Route: 058
     Dates: start: 20161006, end: 20181128

REACTIONS (13)
  - Pain [Unknown]
  - Psoriasis [Recovering/Resolving]
  - Splenomegaly [Unknown]
  - Hepatic steatosis [Unknown]
  - Computerised tomogram [Unknown]
  - Hepatic cancer [Fatal]
  - General physical health deterioration [Unknown]
  - Hepatic cirrhosis [Unknown]
  - Hepatic fibrosis [Unknown]
  - Drug intolerance [Fatal]
  - Cholangiocarcinoma [Not Recovered/Not Resolved]
  - Condition aggravated [Recovering/Resolving]
  - Weight decreased [Unknown]

NARRATIVE: CASE EVENT DATE: 201803
